FAERS Safety Report 7132663-4 (Version None)
Quarter: 2010Q4

REPORT INFORMATION
  Report Type: 
  Country: None (occurrence: None)
  Receive Date: 20101202
  Receipt Date: 20101119
  Transmission Date: 20110411
  Serious: Yes (Death)
  Sender: FDA-Public Use
  Company Number: US-ENDO PHARMACEUTICALS INC.-OPER20100208

PATIENT
  Sex: Male

DRUGS (1)
  1. OPANA ER [Suspect]
     Dosage: UNK
     Route: 048

REACTIONS (1)
  - RUPTURED CEREBRAL ANEURYSM [None]
